FAERS Safety Report 8315502 (Version 2)
Quarter: 2012Q4

REPORT INFORMATION
  Report Type: 
  Country: JP (occurrence: JP)
  Receive Date: 20111229
  Receipt Date: 20121231
  Transmission Date: 20130627
  Serious: Yes (Hospitalization)
  Sender: FDA-Public Use
  Company Number: JP-ELI_LILLY_AND_COMPANY-JP201112000405

PATIENT
  Age: 86 Year
  Sex: Female

DRUGS (2)
  1. FORTEO [Suspect]
     Dosage: UNK, qd
     Route: 058
     Dates: start: 20111115, end: 20111212
  2. FORTEO [Suspect]
     Dosage: UNK
     Route: 058
     Dates: start: 20111218

REACTIONS (4)
  - Dehydration [Recovered/Resolved]
  - Constipation [Unknown]
  - Decreased appetite [Recovered/Resolved]
  - Incorrect storage of drug [Unknown]
